FAERS Safety Report 4750183-9 (Version None)
Quarter: 2005Q3

REPORT INFORMATION
  Report Type: 
  Country: None (occurrence: None)
  Receive Date: 20050818
  Receipt Date: 20050808
  Transmission Date: 20060218
  Serious: Yes (Other)
  Sender: FDA-Public Use
  Company Number: FRVA20050016

PATIENT
  Age: 30 Year
  Sex: Male

DRUGS (2)
  1. FROVA [Suspect]
     Indication: MIGRAINE
     Dosage: 2.5 MG Q8H PO
     Route: 048
     Dates: start: 20050701, end: 20050701
  2. CYMBALTA [Suspect]
     Indication: DEPRESSION
     Dosage: PO
     Route: 048

REACTIONS (1)
  - SEROTONIN SYNDROME [None]
